FAERS Safety Report 16371059 (Version 2)
Quarter: 2019Q2

REPORT INFORMATION
  Report Type: Spontaneous
  Country: IT (occurrence: IT)
  Receive Date: 20190530
  Receipt Date: 20190605
  Transmission Date: 20190711
  Serious: Yes (Life-Threatening, Hospitalization, Other)
  Sender: FDA-Public Use
  Company Number: IT-ELI_LILLY_AND_COMPANY-IT201905013369

PATIENT
  Age: 57 Year
  Sex: Female

DRUGS (2)
  1. OLANZAPINE. [Suspect]
     Active Substance: OLANZAPINE
     Indication: SCHIZOPHRENIA
     Route: 065
  2. HALOPERIDOL. [Suspect]
     Active Substance: HALOPERIDOL
     Indication: PSYCHOTIC DISORDER
     Dosage: UNK, UNKNOWN
     Route: 065

REACTIONS (9)
  - Intestinal ischaemia [Recovering/Resolving]
  - Pneumonia aspiration [Recovering/Resolving]
  - Colitis ischaemic [Recovering/Resolving]
  - Off label use [Unknown]
  - Acute kidney injury [Recovering/Resolving]
  - Mesenteric vein thrombosis [Recovering/Resolving]
  - Portal vein thrombosis [Recovering/Resolving]
  - Systemic infection [Recovering/Resolving]
  - Pulmonary embolism [Recovering/Resolving]
